FAERS Safety Report 9411666 (Version 1)
Quarter: 2013Q3

REPORT INFORMATION
  Report Type: Spontaneous
  Country: DK (occurrence: DK)
  Receive Date: 20130722
  Receipt Date: 20130722
  Transmission Date: 20140515
  Serious: Yes (Hospitalization)
  Sender: FDA-Public Use
  Company Number: DK-AMGEN-DNKSP2013050275

PATIENT
  Age: 78 Year
  Sex: Female
  Weight: 58 kg

DRUGS (7)
  1. PROLIA [Suspect]
     Indication: OSTEOPOROSIS
     Dosage: 60 MG, Q6MO
     Route: 058
     Dates: start: 20110603
  2. VERALOC [Concomitant]
  3. KALEORID [Concomitant]
  4. PAMOL [Concomitant]
  5. SERETIDE [Concomitant]
  6. BERODUAL [Concomitant]
  7. FURIX [Concomitant]

REACTIONS (2)
  - Sinusitis [Not Recovered/Not Resolved]
  - Cellulitis [Not Recovered/Not Resolved]
